FAERS Safety Report 17247202 (Version 2)
Quarter: 2020Q1

REPORT INFORMATION
  Report Type: Spontaneous
  Country: US (occurrence: US)
  Receive Date: 20200108
  Receipt Date: 20200220
  Transmission Date: 20200409
  Serious: Yes (Other)
  Sender: FDA-Public Use
  Company Number: US-PFIZER INC-2020006801

PATIENT
  Age: 59 Year
  Sex: Female

DRUGS (1)
  1. IBRANCE [Suspect]
     Active Substance: PALBOCICLIB
     Indication: BREAST CANCER FEMALE
     Dosage: 125 MG, CYCLIC (1-21 OF EACH 28-DAY CYCLE, TAKE WHOLE WITH WATER AND FOOD SAME TIME EACH DAY)
     Route: 048

REACTIONS (8)
  - Neuropathy peripheral [Unknown]
  - Fatigue [Unknown]
  - Stomatitis [Unknown]
  - Neuralgia [Unknown]
  - Dry mouth [Unknown]
  - Dehydration [Unknown]
  - Hunger [Unknown]
  - Headache [Unknown]
